FAERS Safety Report 8310004 (Version 5)
Quarter: 2012Q4

REPORT INFORMATION
  Report Type: 
  Country: CA (occurrence: CA)
  Receive Date: 20111223
  Receipt Date: 20121221
  Transmission Date: 20130627
  Serious: Yes (Hospitalization, Other)
  Sender: FDA-Public Use
  Company Number: PHHY2011CA100124

PATIENT
  Sex: Male

DRUGS (2)
  1. SANDOSTATIN LAR [Suspect]
     Indication: CARCINOID TUMOUR
     Dosage: 30 mg, every 4 weeks
     Route: 030
     Dates: start: 20060111
  2. SANDOSTATIN LAR [Suspect]
     Dosage: 30 mg, every 4 weeks
     Route: 030
     Dates: start: 20121001

REACTIONS (15)
  - Unresponsive to stimuli [Unknown]
  - Loss of consciousness [Unknown]
  - Hypopnoea [Unknown]
  - Eye movement disorder [Unknown]
  - Skin warm [Unknown]
  - Faecal incontinence [Unknown]
  - Urinary incontinence [Unknown]
  - Paraesthesia [Unknown]
  - Vomiting [Unknown]
  - Syncope [Unknown]
  - Blood pressure increased [Unknown]
  - Cholelithiasis [Unknown]
  - Pallor [Unknown]
  - Dyspnoea [Unknown]
  - Injection site discomfort [Unknown]
